FAERS Safety Report 7631720-3 (Version None)
Quarter: 2011Q3

REPORT INFORMATION
  Report Type: 
  Country: None (occurrence: None)
  Receive Date: 20110725
  Receipt Date: 20110718
  Transmission Date: 20111222
  Serious: Yes (Hospitalization)
  Sender: FDA-Public Use
  Company Number: US-SANOFI-AVENTIS-2011SA046201

PATIENT
  Age: 82 Year
  Sex: Male

DRUGS (5)
  1. LASIX [Suspect]
     Route: 065
  2. METFORMIN HCL [Suspect]
     Indication: TYPE 2 DIABETES MELLITUS
     Route: 065
  3. INVESTIGATIONAL DRUG [Suspect]
     Indication: TYPE 2 DIABETES MELLITUS
     Route: 048
     Dates: start: 20100526
  4. INSPRA [Suspect]
     Route: 065
  5. HYDROCHLOROTHIAZIDE [Suspect]
     Route: 065

REACTIONS (1)
  - RENAL FAILURE ACUTE [None]
